FAERS Safety Report 5749728-1 (Version None)
Quarter: 2008Q2

REPORT INFORMATION
  Report Type: 
  Country: None (occurrence: None)
  Receive Date: 20080527
  Receipt Date: 20080519
  Transmission Date: 20081010
  Serious: Yes (Other)
  Sender: FDA-Public Use
  Company Number: CH-ABBOTT-08P-151-0452729-00

PATIENT
  Age: 47 Year
  Sex: Female

DRUGS (3)
  1. DEPAKENE [Suspect]
     Indication: BIPOLAR DISORDER
     Route: 048
     Dates: start: 20080226
  2. ZOPICLONE [Concomitant]
     Indication: DRUG USE FOR UNKNOWN INDICATION
     Route: 048
     Dates: start: 20080409
  3. LORAZEPAM [Concomitant]
     Indication: BIPOLAR DISORDER
     Route: 048
     Dates: start: 20080219

REACTIONS (4)
  - BREATH ODOUR [None]
  - DEPRESSION [None]
  - TONGUE DISCOLOURATION [None]
  - WEIGHT DECREASED [None]
